FAERS Safety Report 6790323-3 (Version None)
Quarter: 2010Q2

REPORT INFORMATION
  Report Type: 
  Country: None (occurrence: None)
  Receive Date: 20100624
  Receipt Date: 20070621
  Transmission Date: 20101027
  Serious: No
  Sender: FDA-Public Use
  Company Number: US-PFIZER INC-2007035295

PATIENT
  Sex: Female
  Weight: 44 kg

DRUGS (12)
  1. PROVERA [Suspect]
     Indication: MENOPAUSAL SYMPTOMS
     Dosage: 12 EVERY 1 MONTHS
     Dates: start: 19910101
  2. ESTRACE [Suspect]
     Indication: HORMONE REPLACEMENT THERAPY
     Dates: start: 19930101
  3. VERAPAMIL HYDROCHLORIDE [Suspect]
  4. VALIUM [Concomitant]
     Indication: PANIC ATTACK
  5. PROTONIX [Concomitant]
  6. BENTYL [Concomitant]
  7. ALEVE (CAPLET) [Concomitant]
     Indication: ARTHRITIS
  8. TYLENOL [Concomitant]
  9. BOTOX [Concomitant]
     Indication: MIGRAINE
  10. VITAMINS [Concomitant]
  11. INDERAL [Concomitant]
     Indication: PALPITATIONS
  12. LEXAPRO [Concomitant]

REACTIONS (11)
  - ANXIETY [None]
  - DEPRESSION [None]
  - GASTRITIS [None]
  - HAIR TEXTURE ABNORMAL [None]
  - HEADACHE [None]
  - HYPERTRICHOSIS [None]
  - NASAL CONGESTION [None]
  - NERVOUSNESS [None]
  - POST-TRAUMATIC STRESS DISORDER [None]
  - RASH [None]
  - UNDERWEIGHT [None]
